FAERS Safety Report 5168730-4 (Version None)
Quarter: 2006Q4

REPORT INFORMATION
  Report Type: 
  Country: None (occurrence: None)
  Receive Date: 20061211
  Receipt Date: 20061201
  Transmission Date: 20070319
  Serious: Yes (Hospitalization)
  Sender: FDA-Public Use
  Company Number: US-JNJFOC-20061200802

PATIENT
  Sex: Female

DRUGS (12)
  1. INFLIXIMAB [Suspect]
     Indication: RHEUMATOID ARTHRITIS
     Route: 042
  2. METHOTREXATE [Concomitant]
  3. FOLIC ACID [Concomitant]
  4. FISH OIL [Concomitant]
  5. OCUVIT [Concomitant]
  6. POTASSIUM ACETATE [Concomitant]
  7. PREDNISONE TAB [Concomitant]
  8. VITAMIN D [Concomitant]
  9. VITAMIN E [Concomitant]
  10. ULTRACET [Concomitant]
  11. OSCAL [Concomitant]
  12. CENTRUM SILVER [Concomitant]

REACTIONS (1)
  - BREAST CANCER [None]
